FAERS Safety Report 6278945-X (Version None)
Quarter: 2009Q3

REPORT INFORMATION
  Report Type: 
  Country: None (occurrence: None)
  Receive Date: 20090723
  Receipt Date: 20090717
  Transmission Date: 20100115
  Serious: Yes (Hospitalization, Other)
  Sender: FDA-Public Use
  Company Number: US-ELI_LILLY_AND_COMPANY-US200907003962

PATIENT
  Sex: Female

DRUGS (3)
  1. HUMALOG [Suspect]
     Indication: DIABETES MELLITUS
     Dosage: UNK, UNK
     Dates: start: 20081001
  2. HUMALOG [Suspect]
     Dosage: UNK, UNK
     Dates: start: 19931201, end: 20081001
  3. LANTUS [Concomitant]
     Dosage: 50 U, EACH MORNING

REACTIONS (10)
  - BLINDNESS [None]
  - BLOOD GLUCOSE DECREASED [None]
  - BODY TEMPERATURE DECREASED [None]
  - CELLULITIS [None]
  - DRUG INTERACTION [None]
  - HYPOGLYCAEMIC COMA [None]
  - HYPOGLYCAEMIC SEIZURE [None]
  - MACULAR DEGENERATION [None]
  - OPEN WOUND [None]
  - POLYMYALGIA RHEUMATICA [None]
